FAERS Safety Report 12573079 (Version 1)
Quarter: 2016Q3

REPORT INFORMATION
  Report Type: Report from Study
  Country: US (occurrence: US)
  Receive Date: 20160720
  Receipt Date: 20160720
  Transmission Date: 20161109
  Serious: Yes (Other)
  Sender: FDA-Public Use
  Company Number: US-ROCHE-1797679

PATIENT
  Age: 65 Year
  Sex: Male
  Weight: 85.4 kg

DRUGS (5)
  1. GEMCITABINE HYDROCHLORIDE. [Suspect]
     Active Substance: GEMCITABINE HYDROCHLORIDE
     Route: 042
     Dates: start: 20110718
  2. VISMODEGIB [Suspect]
     Active Substance: VISMODEGIB
     Indication: PANCREATIC CARCINOMA
     Dosage: 20/JUN/2011, 18/JUL/2011 AND 10/OCT/2011
     Route: 048
     Dates: start: 20110523, end: 20111024
  3. GEMCITABINE HYDROCHLORIDE. [Suspect]
     Active Substance: GEMCITABINE HYDROCHLORIDE
     Indication: PANCREATIC CARCINOMA
     Dosage: 03/JAN/2011, 31/JAN/2011, 28/FEB/2011, 23/MAY/2011 AND 10/OCT/2011
     Route: 042
     Dates: start: 20101108, end: 20111024
  4. GEMCITABINE HYDROCHLORIDE. [Suspect]
     Active Substance: GEMCITABINE HYDROCHLORIDE
     Dosage: 15/AUG/2011
     Route: 042
     Dates: start: 20110620
  5. VISMODEGIB [Suspect]
     Active Substance: VISMODEGIB
     Route: 048
     Dates: start: 20110815

REACTIONS (2)
  - Neutrophil count decreased [Unknown]
  - Alanine aminotransferase increased [Unknown]
